FAERS Safety Report 7012693-3 (Version None)
Quarter: 2010Q3

REPORT INFORMATION
  Report Type: 
  Country: None (occurrence: None)
  Receive Date: 20100922
  Receipt Date: 20100914
  Transmission Date: 20110219
  Serious: Yes (Hospitalization)
  Sender: FDA-Public Use
  Company Number: UTC-001381

PATIENT
  Sex: Male
  Weight: 68 kg

DRUGS (12)
  1. REMODULIN [Suspect]
     Indication: PULMONARY HYPERTENSION
     Dosage: 345.6 UG/KG (0.24 UG/KG, 1 IN 1 MIN), INTRAVENOUS
     Route: 042
     Dates: start: 20051110
  2. IMODIUM [Concomitant]
  3. ALLOPURINOL [Concomitant]
  4. PROPRANOLOL [Concomitant]
  5. ALDACTONE [Concomitant]
  6. AMSIEN (ZOLPIDEM TARTRATE) [Concomitant]
  7. REVATIO [Concomitant]
  8. OMEPRAZOLE [Concomitant]
  9. POTASSIUM CHLORIDE [Concomitant]
  10. TRACLEER [Concomitant]
  11. LASIX [Concomitant]
  12. NEURONTIN [Concomitant]

REACTIONS (1)
  - HYPERTHYROIDISM [None]
